FAERS Safety Report 20990041 (Version 2)
Quarter: 2025Q4

REPORT INFORMATION
  Report Type: Spontaneous
  Country: JP (occurrence: JP)
  Receive Date: 20220621
  Receipt Date: 20251107
  Transmission Date: 20260117
  Serious: Yes (Hospitalization, Other)
  Sender: STRIDES
  Company Number: JP-STRIDES ARCOLAB LIMITED-2022SP007494

PATIENT
  Age: 86 Year
  Sex: Female

DRUGS (1)
  1. METHOTREXATE [Suspect]
     Active Substance: METHOTREXATE
     Indication: Rheumatoid arthritis
     Dosage: 8 MILLIGRAM, ONCE A WEEK
     Route: 048

REACTIONS (4)
  - Lymphoproliferative disorder [Recovered/Resolved]
  - Disease recurrence [Recovering/Resolving]
  - Nervous system disorder [Recovered/Resolved]
  - Epstein-Barr virus infection [Unknown]
